FAERS Safety Report 8203198-2 (Version None)
Quarter: 2012Q1

REPORT INFORMATION
  Report Type: 
  Country: None (occurrence: None)
  Receive Date: 20120312
  Receipt Date: 20120301
  Transmission Date: 20120608
  Serious: Yes (Other)
  Sender: FDA-Public Use
  Company Number: US-ASTRAZENECA-2009SE19234

PATIENT
  Age: 88 Year
  Sex: Female

DRUGS (2)
  1. CRESTOR [Suspect]
     Route: 048
  2. TOPROL-XL [Concomitant]
     Route: 048

REACTIONS (3)
  - NEOPLASM [None]
  - CEREBROVASCULAR ACCIDENT [None]
  - CYSTITIS [None]
